FAERS Safety Report 6166441-X (Version None)
Quarter: 2009Q2

REPORT INFORMATION
  Report Type: 
  Country: None (occurrence: None)
  Receive Date: 20090422
  Receipt Date: 20090422
  Transmission Date: 20091009
  Serious: No
  Sender: FDA-Public Use
  Company Number: None

PATIENT
  Age: 53 Year
  Sex: Male
  Weight: 107.9561 kg

DRUGS (2)
  1. ASPIRIN [Suspect]
     Indication: BLOOD CHOLESTEROL
     Dosage: 1 DAILY  PO
     Route: 048
     Dates: start: 20090306, end: 20090421
  2. ASPIRIN [Suspect]
     Indication: CARDIAC DISORDER
     Dosage: 1 DAILY  PO
     Route: 048
     Dates: start: 20090306, end: 20090421

REACTIONS (4)
  - MALAISE [None]
  - PRODUCT COLOUR ISSUE [None]
  - PRODUCT ODOUR ABNORMAL [None]
  - PRODUCT SHAPE ISSUE [None]
